FAERS Safety Report 4434252-9 (Version None)
Quarter: 2004Q3

REPORT INFORMATION
  Report Type: 
  Country: None (occurrence: None)
  Receive Date: 20040726
  Receipt Date: 20040330
  Transmission Date: 20050211
  Serious: No
  Sender: FDA-Public Use
  Company Number: USA040157713

PATIENT
  Age: 60 Year
  Sex: Female
  Weight: 54 kg

DRUGS (3)
  1. FORTEO [Suspect]
     Indication: BONE DENSITY DECREASED
     Dosage: 20 UG/DAY
     Dates: start: 20030101
  2. FORTEO [Suspect]
     Indication: OSTEOPOROSIS
     Dosage: 20 UG/DAY
     Dates: start: 20030101
  3. CALTRATE (CALCIUM CARBONATE) [Concomitant]

REACTIONS (5)
  - BLOOD CALCIUM INCREASED [None]
  - PAIN [None]
  - POLLAKIURIA [None]
  - RENAL PAIN [None]
  - WEIGHT DECREASED [None]
